FAERS Safety Report 4294867-8 (Version None)
Quarter: 2004Q1

REPORT INFORMATION
  Report Type: 
  Country: None (occurrence: None)
  Receive Date: 20040216
  Receipt Date: 20030131
  Transmission Date: 20041129
  Serious: No
  Sender: FDA-Public Use
  Company Number: US-GLAXOSMITHKLINE-A0394839A

PATIENT
  Age: 56 Year
  Sex: Female
  Weight: 47.7 kg

DRUGS (3)
  1. LAMICTAL [Suspect]
     Indication: DEPRESSION
     Dosage: 100MG TWICE PER DAY
     Route: 048
     Dates: start: 20020501
  2. DEPAKOTE [Concomitant]
     Dosage: 500MG TWICE PER DAY
  3. ALORA [Concomitant]

REACTIONS (1)
  - DRUG INEFFECTIVE [None]
